FAERS Safety Report 7964755-1 (Version None)
Quarter: 2011Q4

REPORT INFORMATION
  Report Type: 
  Country: None (occurrence: None)
  Receive Date: 20111208
  Receipt Date: 20111201
  Transmission Date: 20120403
  Serious: Yes (Other)
  Sender: FDA-Public Use
  Company Number: JP-PFIZER INC-2011289940

PATIENT
  Age: 26 Year
  Sex: Male
  Weight: 60 kg

DRUGS (3)
  1. VARENICLINE TARTRATE [Suspect]
     Indication: SMOKING CESSATION THERAPY
     Dosage: 0.5 MG, 1X/DAY
     Route: 048
     Dates: start: 20110831, end: 20110902
  2. VARENICLINE TARTRATE [Suspect]
     Dosage: 1 MG, 2X/DAY, IN THE MORNING AND EVENING
     Route: 048
     Dates: start: 20110907, end: 20111101
  3. VARENICLINE TARTRATE [Suspect]
     Dosage: 0.5 MG, 2X/DAY, IN THE MORNING AND EVENING
     Route: 048
     Dates: start: 20110903, end: 20110906

REACTIONS (4)
  - ALTERED STATE OF CONSCIOUSNESS [None]
  - ROAD TRAFFIC ACCIDENT [None]
  - FATIGUE [None]
  - NAUSEA [None]
